FAERS Safety Report 5627513-9 (Version None)
Quarter: 2008Q1

REPORT INFORMATION
  Report Type: 
  Country: None (occurrence: None)
  Receive Date: 20080215
  Receipt Date: 20071105
  Transmission Date: 20080703
  Serious: No
  Sender: FDA-Public Use
  Company Number: A0691452A

PATIENT
  Sex: Female

DRUGS (1)
  1. COREG CR [Suspect]
     Route: 048
     Dates: start: 20070801

REACTIONS (2)
  - FATIGUE [None]
  - PAIN IN EXTREMITY [None]
